FAERS Safety Report 8068113-3 (Version None)
Quarter: 2012Q1

REPORT INFORMATION
  Report Type: 
  Country: None (occurrence: None)
  Receive Date: 20120124
  Receipt Date: 20110922
  Transmission Date: 20120608
  Serious: No
  Sender: FDA-Public Use
  Company Number: US-AMGEN-USASP2011049024

PATIENT
  Age: 80 Year
  Sex: Female

DRUGS (8)
  1. OXYBUTYNIN CHLORIDE [Concomitant]
  2. PROLIA [Suspect]
     Indication: OSTEOPOROSIS POSTMENOPAUSAL
     Dosage: 60 MG, Q6MO
     Dates: start: 20110101
  3. VITAMIN D [Concomitant]
  4. EFFEXOR [Concomitant]
  5. ARICEPT [Concomitant]
  6. METROGYL                           /00012501/ [Concomitant]
  7. CALCIUM [Concomitant]
  8. NAMENDA [Concomitant]

REACTIONS (2)
  - JOINT SWELLING [None]
  - OEDEMA PERIPHERAL [None]
